FAERS Safety Report 6575228-5 (Version None)
Quarter: 2010Q1

REPORT INFORMATION
  Report Type: 
  Country: None (occurrence: None)
  Receive Date: 20100202
  Receipt Date: 20100118
  Transmission Date: 20100710
  Serious: Yes (Death)
  Sender: FDA-Public Use
  Company Number: AE 2009-072

PATIENT
  Age: 90 Year
  Sex: Male

DRUGS (3)
  1. FAZACLO ODT [Suspect]
     Indication: DEMENTIA
     Dosage: 12.5MG QHS PO
     Route: 048
     Dates: start: 20070717, end: 20090307
  2. NORVASC [Concomitant]
  3. CELEXA [Concomitant]

REACTIONS (1)
  - DEATH [None]
